FAERS Safety Report 18715416 (Version 3)
Quarter: 2021Q2

REPORT INFORMATION
  Report Type: Other
  Country: JP (occurrence: JP)
  Receive Date: 20210108
  Receipt Date: 20210416
  Transmission Date: 20210717
  Serious: Yes (Other)
  Sender: FDA-Public Use
  Company Number: JP-ROCHE-2743355

PATIENT
  Age: 31 Year
  Sex: Male
  Weight: 57 kg

DRUGS (29)
  1. RITUXIMAB. [Suspect]
     Active Substance: RITUXIMAB
     Route: 041
     Dates: start: 20191028, end: 20191028
  2. TACROLIMUS MONOHYDRATE [Suspect]
     Active Substance: TACROLIMUS
     Route: 048
     Dates: start: 20191109, end: 20191117
  3. TACROLIMUS MONOHYDRATE [Suspect]
     Active Substance: TACROLIMUS
     Route: 048
     Dates: start: 20191118, end: 20191217
  4. METHYLPREDNISOLONE. [Suspect]
     Active Substance: METHYLPREDNISOLONE
     Route: 048
     Dates: start: 20191206, end: 20200120
  5. SOLU?CORTEF [Concomitant]
     Active Substance: HYDROCORTISONE SODIUM SUCCINATE
     Indication: PREMEDICATION
     Route: 042
     Dates: start: 20191015, end: 20191015
  6. SOLU?CORTEF [Concomitant]
     Active Substance: HYDROCORTISONE SODIUM SUCCINATE
     Route: 042
     Dates: start: 20191028, end: 20191028
  7. CALONAL [Concomitant]
     Active Substance: ACETAMINOPHEN
     Indication: PREMEDICATION
     Route: 048
     Dates: start: 20191015, end: 20191015
  8. CALONAL [Concomitant]
     Active Substance: ACETAMINOPHEN
     Route: 048
     Dates: start: 20191028, end: 20191028
  9. TACROLIMUS MONOHYDRATE [Suspect]
     Active Substance: TACROLIMUS
     Route: 048
     Dates: start: 20200221, end: 20200222
  10. TACROLIMUS MONOHYDRATE [Suspect]
     Active Substance: TACROLIMUS
     Route: 048
     Dates: start: 20200223, end: 202011
  11. D?CHLORPHENIRAMINE MALEATE [Concomitant]
     Active Substance: DEXCHLORPHENIRAMINE MALEATE
     Route: 048
     Dates: start: 20191028, end: 20191028
  12. TACROLIMUS MONOHYDRATE [Suspect]
     Active Substance: TACROLIMUS
     Route: 048
     Dates: start: 20191103, end: 20191104
  13. TACROLIMUS MONOHYDRATE [Suspect]
     Active Substance: TACROLIMUS
     Route: 048
     Dates: start: 20200723
  14. TACROLIMUS MONOHYDRATE [Suspect]
     Active Substance: TACROLIMUS
     Route: 048
     Dates: start: 20191105, end: 20191108
  15. METHYLPREDNISOLONE. [Suspect]
     Active Substance: METHYLPREDNISOLONE
     Indication: PROPHYLAXIS AGAINST TRANSPLANT REJECTION
     Route: 048
     Dates: start: 20191112, end: 20191118
  16. MYCOPHENOLATE MOFETIL. [Suspect]
     Active Substance: MYCOPHENOLATE MOFETIL
     Indication: PROPHYLAXIS AGAINST TRANSPLANT REJECTION
     Route: 048
     Dates: start: 20191022, end: 20191028
  17. TACROLIMUS MONOHYDRATE [Suspect]
     Active Substance: TACROLIMUS
     Route: 048
     Dates: start: 20191030, end: 20191101
  18. TACROLIMUS MONOHYDRATE [Suspect]
     Active Substance: TACROLIMUS
     Route: 048
     Dates: start: 20191218, end: 20200220
  19. MYCOPHENOLATE MOFETIL. [Suspect]
     Active Substance: MYCOPHENOLATE MOFETIL
     Route: 048
     Dates: start: 20191029, end: 20191029
  20. MYCOPHENOLATE MOFETIL. [Suspect]
     Active Substance: MYCOPHENOLATE MOFETIL
     Route: 048
     Dates: start: 20191030
  21. RITUXIMAB. [Suspect]
     Active Substance: RITUXIMAB
     Indication: PROPHYLAXIS AGAINST TRANSPLANT REJECTION
     Route: 041
     Dates: start: 20191015, end: 20191015
  22. TACROLIMUS MONOHYDRATE [Suspect]
     Active Substance: TACROLIMUS
     Indication: PROPHYLAXIS AGAINST TRANSPLANT REJECTION
     Route: 048
     Dates: start: 20191024, end: 20191029
  23. TACROLIMUS MONOHYDRATE [Suspect]
     Active Substance: TACROLIMUS
     Route: 048
     Dates: start: 20191102, end: 20191102
  24. D?CHLORPHENIRAMINE MALEATE [Concomitant]
     Active Substance: DEXCHLORPHENIRAMINE MALEATE
     Indication: PREMEDICATION
     Route: 048
     Dates: start: 20191015, end: 20191015
  25. TACROLIMUS MONOHYDRATE [Suspect]
     Active Substance: TACROLIMUS
     Route: 048
     Dates: start: 20191108, end: 20191108
  26. METHYLPREDNISOLONE. [Suspect]
     Active Substance: METHYLPREDNISOLONE
     Route: 048
     Dates: start: 20191119, end: 20191125
  27. METHYLPREDNISOLONE. [Suspect]
     Active Substance: METHYLPREDNISOLONE
     Route: 048
     Dates: start: 20191126, end: 20191205
  28. METHYLPREDNISOLONE. [Suspect]
     Active Substance: METHYLPREDNISOLONE
     Route: 048
     Dates: start: 20200121
  29. ACETAMINOPHEN. [Concomitant]
     Active Substance: ACETAMINOPHEN
     Indication: PREMEDICATION
     Route: 048

REACTIONS (2)
  - Cytomegalovirus infection [Recovering/Resolving]
  - Cholangitis acute [Recovering/Resolving]

NARRATIVE: CASE EVENT DATE: 20191213
